FAERS Safety Report 9827322 (Version 1)
Quarter: 2013Q4

REPORT INFORMATION
  Report Type: Spontaneous
  Country: US (occurrence: None)
  Receive Date: 20131223
  Receipt Date: 20131223
  Transmission Date: 20140711
  Serious: No
  Sender: FDA-Public Use
  Company Number: 220364LEO

PATIENT
  Age: 59 Year
  Sex: Female

DRUGS (2)
  1. PICATO GEL [Suspect]
     Indication: ACTINIC KERATOSIS
     Dosage: TOPICAL
     Dates: start: 20130129, end: 20130131
  2. SYNTHROID (LEVOTHYROXINE SODIUM) (75 MG) [Concomitant]

REACTIONS (1)
  - Application site erythema [None]
